FAERS Safety Report 5528244-6 (Version None)
Quarter: 2007Q4

REPORT INFORMATION
  Report Type: 
  Country: None (occurrence: None)
  Receive Date: 20071128
  Receipt Date: 20071122
  Transmission Date: 20080405
  Serious: Yes (Life-Threatening, Hospitalization, Other)
  Sender: FDA-Public Use
  Company Number: GB-PFIZER INC-2007098811

PATIENT
  Age: 39 Year
  Sex: Male
  Weight: 110 kg

DRUGS (8)
  1. CHAMPIX [Suspect]
     Dosage: TEXT:500UG
     Route: 048
     Dates: start: 20071108, end: 20071109
  2. CO-CODAMOL [Concomitant]
     Route: 048
  3. ERYTHROMYCIN [Concomitant]
     Route: 048
     Dates: start: 20071026, end: 20071103
  4. MONTELUKAST SODIUM [Concomitant]
     Route: 048
  5. RAMIPRIL [Concomitant]
     Route: 048
  6. ALBUTEROL [Concomitant]
     Dosage: TEXT:100UG
     Route: 055
  7. SERETIDE [Concomitant]
     Dosage: TEXT:500UG
     Route: 055
  8. SIMVASTATIN [Concomitant]
     Route: 048

REACTIONS (3)
  - DIZZINESS [None]
  - DYSARTHRIA [None]
  - VERTEBRAL ARTERY OCCLUSION [None]
